FAERS Safety Report 4415618-X (Version None)
Quarter: 2004Q3

REPORT INFORMATION
  Report Type: 
  Country: None (occurrence: None)
  Receive Date: 20040730
  Receipt Date: 20040715
  Transmission Date: 20050211
  Serious: Yes (Other)
  Sender: FDA-Public Use
  Company Number: A-US2004-06862

PATIENT
  Age: 59 Year
  Sex: Female

DRUGS (8)
  1. TRACLEER [Suspect]
     Indication: PULMONARY HYPERTENSION
     Dosage: 125 MG, BID, ORAL
     Route: 048
     Dates: start: 20030101, end: 20040701
  2. LASIX [Concomitant]
  3. PREVACID [Concomitant]
  4. PREDNISONE [Concomitant]
  5. COUMADIN [Concomitant]
  6. ASPIRIN [Concomitant]
  7. POTASSIUM [Concomitant]
  8. ATROVENT [Concomitant]

REACTIONS (2)
  - MARROW HYPERPLASIA [None]
  - PANCYTOPENIA [None]
